FAERS Safety Report 7165326-X (Version None)
Quarter: 2010Q4

REPORT INFORMATION
  Report Type: 
  Country: None (occurrence: None)
  Receive Date: 20101215
  Receipt Date: 20091231
  Transmission Date: 20110411
  Serious: No
  Sender: FDA-Public Use
  Company Number: US-AMGEN-KDL383256

PATIENT

DRUGS (15)
  1. ENBREL [Suspect]
     Indication: PRODUCT USED FOR UNKNOWN INDICATION
     Dosage: 25 MG, 2 TIMES/WK
     Route: 058
  2. IBANDRONATE SODIUM [Concomitant]
     Dosage: 150 MG, UNK
  3. CELECOXIB [Concomitant]
     Dosage: 200 MG, UNK
  4. AVANDIA [Concomitant]
     Dosage: 4 MG, UNK
  5. SERTRALINE HYDROCHLORIDE [Concomitant]
     Dosage: 100 MG, UNK
  6. OMEPRAZOLE [Concomitant]
     Dosage: 20 MG, UNK
  7. HYDROCHLOROTHIAZIDE [Concomitant]
     Dosage: 25 MG, UNK
  8. GLIPIZIDE [Concomitant]
     Dosage: 5 MG, UNK
  9. ASPIRIN [Concomitant]
     Dosage: 81 MG, UNK
  10. CEREFOLIN [Concomitant]
     Dosage: UNK UNK, UNK
  11. OSCAL [Concomitant]
     Dosage: 200 MG, UNK
  12. ERGOCALCIFEROL [Concomitant]
     Dosage: 400 IU/KG, UNK
  13. METHOTREXATE [Concomitant]
     Dosage: 25 MG, UNK
  14. METFORMIN HCL [Concomitant]
     Dosage: 1000 MG, UNK
  15. COLECALCIFEROL [Concomitant]

REACTIONS (1)
  - IRRITABILITY [None]
